FAERS Safety Report 13385065 (Version 1)
Quarter: 2017Q1

REPORT INFORMATION
  Report Type: Spontaneous
  Country: FR (occurrence: FR)
  Receive Date: 20170329
  Receipt Date: 20170329
  Transmission Date: 20170429
  Serious: Yes (Hospitalization)
  Sender: FDA-Public Use
  Company Number: FR-009507513-1703FRA012063

PATIENT
  Age: 35 Year
  Sex: Female

DRUGS (7)
  1. GONAL-F [Suspect]
     Active Substance: FOLLITROPIN
     Dosage: 75 IU, FOR 2 DAYS (48 HRS)
     Route: 058
  2. DECAPEPTYL (ACETATE) [Suspect]
     Active Substance: TRIPTORELIN ACETATE
     Indication: IN VITRO FERTILISATION
     Dosage: 0.1 MG, BID
     Route: 058
     Dates: start: 20160521
  3. GONAL-F [Suspect]
     Active Substance: FOLLITROPIN
     Dosage: 87.5 IU, FOR 2 DAYS (48 HRS) 1 TWICE PER DAY
     Route: 058
     Dates: end: 20160520
  4. GONAL-F [Suspect]
     Active Substance: FOLLITROPIN
     Indication: IN VITRO FERTILISATION
     Dosage: 112.5 IU, FOR FIVE DAYS
     Route: 058
     Dates: start: 20160512
  5. GONADOTROPHINE CHORIONIQUE ENDO 1500 UI/1ML [Suspect]
     Active Substance: GONADOTROPHIN, CHORIONIC
     Indication: IN VITRO FERTILISATION
     Dosage: 1 DF, BID
     Route: 030
     Dates: start: 20160521
  6. ORGALUTRAN [Suspect]
     Active Substance: GANIRELIX ACETATE
     Indication: IN VITRO FERTILISATION
     Dosage: 1 DF, BID
     Route: 058
     Dates: start: 20160517, end: 20160520
  7. PROGESTERONE. [Suspect]
     Active Substance: PROGESTERONE
     Indication: IN VITRO FERTILISATION
     Dosage: 4 TWICE IN ONE DAY
     Route: 067
     Dates: start: 20160521, end: 20160521

REACTIONS (5)
  - Ascites [Recovered/Resolved]
  - Subileus [Recovered/Resolved]
  - Exposure during pregnancy [Unknown]
  - Hyponatraemia [Recovered/Resolved]
  - Ovarian hyperstimulation syndrome [Recovered/Resolved]

NARRATIVE: CASE EVENT DATE: 20160617
